FAERS Safety Report 25730546 (Version 1)
Quarter: 2025Q3

REPORT INFORMATION
  Report Type: Spontaneous
  Country: US (occurrence: None)
  Receive Date: 20250826
  Receipt Date: 20250826
  Transmission Date: 20251021
  Serious: Yes (Disabling)
  Sender: FDA-CTU
  Company Number: None

PATIENT
  Sex: Female
  Weight: 61.23 kg

DRUGS (4)
  1. MONTELUKAST SODIUM [Suspect]
     Active Substance: MONTELUKAST SODIUM
     Indication: Asthma
     Route: 048
  2. ASPIRIN [Concomitant]
     Active Substance: ASPIRIN
  3. Women Vitamins [Concomitant]
  4. Weight loss vitamin - Lipovive [Concomitant]

REACTIONS (30)
  - Upper respiratory tract infection [None]
  - Cough [None]
  - Influenza [None]
  - Pyrexia [None]
  - Abdominal pain upper [None]
  - Rhinorrhoea [None]
  - Headache [None]
  - Diarrhoea [None]
  - Sinusitis [None]
  - Oropharyngeal pain [None]
  - Ear pain [None]
  - Ear infection [None]
  - Agitation [None]
  - Hostility [None]
  - Aggression [None]
  - Hallucinations, mixed [None]
  - Suicidal ideation [None]
  - Disturbance in attention [None]
  - Memory impairment [None]
  - Tremor [None]
  - Abnormal dreams [None]
  - Obsessive-compulsive symptom [None]
  - Insomnia [None]
  - Depression [None]
  - Restlessness [None]
  - Dyskinesia [None]
  - Disorientation [None]
  - Anxiety [None]
  - Dysphemia [None]
  - Irritability [None]
